FAERS Safety Report 25311557 (Version 2)
Quarter: 2025Q2

REPORT INFORMATION
  Report Type: Spontaneous
  Country: HR (occurrence: HR)
  Receive Date: 20250514
  Receipt Date: 20250520
  Transmission Date: 20250717
  Serious: Yes (Other)
  Sender: NOVARTIS
  Company Number: HR-002147023-NVSC2025HR076550

PATIENT
  Age: 46 Year
  Sex: Female

DRUGS (2)
  1. MAYZENT [Suspect]
     Active Substance: SIPONIMOD
     Indication: Relapsing-remitting multiple sclerosis
     Route: 065
     Dates: start: 202111, end: 202206
  2. MAYZENT [Suspect]
     Active Substance: SIPONIMOD
     Route: 065
     Dates: start: 202208

REACTIONS (2)
  - Diverticulitis [Unknown]
  - Lymphopenia [Unknown]

NARRATIVE: CASE EVENT DATE: 20220601
